FAERS Safety Report 24402181 (Version 1)
Quarter: 2024Q4

REPORT INFORMATION
  Report Type: Spontaneous
  Country: US (occurrence: US)
  Receive Date: 20241007
  Receipt Date: 20241007
  Transmission Date: 20250114
  Serious: Yes (Hospitalization, Other)
  Sender: CATALYST PHARMA
  Company Number: US-CATALYST PHARMACEUTICALS, INC-US-CATA-24-01085

PATIENT
  Age: 53 Year
  Sex: Female
  Weight: 79.365 kg

DRUGS (12)
  1. FIRDAPSE [Suspect]
     Active Substance: AMIFAMPRIDINE PHOSPHATE
     Indication: Myasthenic syndrome
     Dosage: 5 MG, THREE TIMES A DAY
     Route: 048
     Dates: start: 20230405, end: 2023
  2. FIRDAPSE [Suspect]
     Active Substance: AMIFAMPRIDINE PHOSPHATE
     Dosage: 1 TABLET, THREE TIMES A DAY
     Route: 048
     Dates: start: 20230502
  3. AMBIEN [Concomitant]
     Active Substance: ZOLPIDEM TARTRATE
     Indication: Product used for unknown indication
     Dosage: 10 MG DAILY
     Route: 065
  4. ATIVAN [Concomitant]
     Active Substance: LORAZEPAM
     Indication: Product used for unknown indication
     Dosage: 1 MG DAILY
     Route: 065
  5. BUTRANS [Concomitant]
     Active Substance: BUPRENORPHINE
     Indication: Product used for unknown indication
     Dosage: 10 MCG PATCH, DAILY
     Route: 065
  6. COENZYME Q10 [Concomitant]
     Active Substance: DIETARY SUPPLEMENT\UBIDECARENONE
     Indication: Product used for unknown indication
     Dosage: 30 MG DAILY
     Route: 065
  7. HUMAN IMMUNOGLOBULIN G [Concomitant]
     Active Substance: HUMAN IMMUNOGLOBULIN G
     Indication: Product used for unknown indication
     Dosage: 80 MG EVERY 4 WEEKS
     Route: 042
  8. KEPPRA [Concomitant]
     Active Substance: LEVETIRACETAM
     Indication: Product used for unknown indication
     Dosage: 500 MG TWICE DAILY
     Route: 065
  9. MAGNESIUM [Concomitant]
     Active Substance: MAGNESIUM
     Indication: Product used for unknown indication
     Dosage: 400 MG DAILY
     Route: 065
  10. MESTINON [Concomitant]
     Active Substance: PYRIDOSTIGMINE BROMIDE
     Indication: Product used for unknown indication
     Dosage: 60 MG DAILY
     Route: 065
  11. PREDNISONE [Concomitant]
     Active Substance: PREDNISONE
     Indication: Product used for unknown indication
     Dosage: 10 MG DAILY
     Route: 065
  12. TYLENOL [Concomitant]
     Active Substance: ACETAMINOPHEN
     Indication: Product used for unknown indication
     Dosage: 325 MG DAILY
     Route: 065

REACTIONS (2)
  - Chest pain [Recovered/Resolved]
  - Seizure like phenomena [Recovered/Resolved]

NARRATIVE: CASE EVENT DATE: 20240920
